FAERS Safety Report 8115486-9 (Version None)
Quarter: 2012Q1

REPORT INFORMATION
  Report Type: 
  Country: None (occurrence: None)
  Receive Date: 20120206
  Receipt Date: 20120131
  Transmission Date: 20120608
  Serious: Yes (Other)
  Sender: FDA-Public Use
  Company Number: US-SANOFI-AVENTIS-2012SA007379

PATIENT
  Sex: Female

DRUGS (1)
  1. LANTUS [Suspect]
     Dosage: HAS USED LANTUS FOR 8 YEARS. DOSE:22 UNIT(S)
     Route: 058

REACTIONS (1)
  - DIABETIC RETINOPATHY [None]
